FAERS Safety Report 9100838 (Version 1)
Quarter: 2013Q1

REPORT INFORMATION
  Report Type: Spontaneous
  Country: BR (occurrence: BR)
  Receive Date: 20130215
  Receipt Date: 20130215
  Transmission Date: 20140127
  Serious: Yes (Other)
  Sender: FDA-Public Use
  Company Number: BR-JNJFOC-20130200849

PATIENT
  Age: 89 Year
  Sex: Male

DRUGS (3)
  1. ZYTIGA [Suspect]
     Indication: PROSTATE CANCER
     Route: 048
     Dates: start: 20130129
  2. INSULIN [Concomitant]
     Route: 065
  3. PREDNISONE [Concomitant]
     Indication: PROSTATE CANCER
     Route: 048
     Dates: start: 20130129

REACTIONS (7)
  - Flushing [Not Recovered/Not Resolved]
  - Nocturnal dyspnoea [Not Recovered/Not Resolved]
  - Ocular hyperaemia [Not Recovered/Not Resolved]
  - Medication error [Unknown]
  - Malaise [Not Recovered/Not Resolved]
  - Urine output increased [Not Recovered/Not Resolved]
  - Hyperhidrosis [Recovered/Resolved]
